FAERS Safety Report 22625926 (Version 1)
Quarter: 2023Q2

REPORT INFORMATION
  Report Type: Spontaneous
  Country: US (occurrence: None)
  Receive Date: 20230619
  Receipt Date: 20230619
  Transmission Date: 20230721
  Serious: Yes (Hospitalization)
  Sender: FDA-Public Use
  Company Number: None

PATIENT
  Sex: Male

DRUGS (2)
  1. ABIRATERONE ACETATE [Suspect]
     Active Substance: ABIRATERONE ACETATE
     Indication: Prostate cancer
     Dosage: 1000MG ONCE DAILY ORAL
     Route: 048
     Dates: start: 20210720
  2. PREDNISONE INTENSOL [Suspect]
     Active Substance: PREDNISONE
     Indication: Prostate cancer
     Dosage: 5MG TWICE A DAY ORAL
     Route: 048
     Dates: start: 20210720

REACTIONS (3)
  - Skin neoplasm excision [None]
  - Cardiac failure congestive [None]
  - Pneumonia [None]
